FAERS Safety Report 5862865-6 (Version None)
Quarter: 2008Q3

REPORT INFORMATION
  Report Type: 
  Country: None (occurrence: None)
  Receive Date: 20080828
  Receipt Date: 20080822
  Transmission Date: 20090109
  Serious: Yes (Hospitalization)
  Sender: FDA-Public Use
  Company Number: A0731200A

PATIENT
  Age: 70 Year
  Sex: Female
  Weight: 96.8 kg

DRUGS (5)
  1. AVANDIA [Suspect]
     Dosage: 4MG TWICE PER DAY
     Route: 048
     Dates: start: 20030101, end: 20060401
  2. GLUCOPHAGE [Concomitant]
  3. METFORMIN HCL [Concomitant]
  4. AMARYL [Concomitant]
  5. STARLIX [Concomitant]

REACTIONS (3)
  - ARRHYTHMIA [None]
  - ARTERIOSCLEROSIS [None]
  - CARDIAC FAILURE CONGESTIVE [None]
